FAERS Safety Report 17309557 (Version 1)
Quarter: 2020Q1

REPORT INFORMATION
  Report Type: Spontaneous
  Country: US (occurrence: US)
  Receive Date: 20200123
  Receipt Date: 20200123
  Transmission Date: 20200409
  Serious: Yes (Other)
  Sender: FDA-Public Use
  Company Number: US-CELGENEUS-USA-20200106045

PATIENT
  Age: 88 Year
  Sex: Male

DRUGS (1)
  1. VIDAZA [Suspect]
     Active Substance: AZACITIDINE
     Indication: MYELODYSPLASTIC SYNDROME
     Route: 042
     Dates: start: 201910, end: 20200103

REACTIONS (5)
  - Pyrexia [Recovered/Resolved]
  - Creatinine renal clearance decreased [Unknown]
  - Haemoglobin decreased [Unknown]
  - Back disorder [Unknown]
  - Fatigue [Unknown]

NARRATIVE: CASE EVENT DATE: 202001
